FAERS Safety Report 18031725 (Version 4)
Quarter: 2020Q3

REPORT INFORMATION
  Report Type: Spontaneous
  Country: NZ (occurrence: NZ)
  Receive Date: 20200716
  Receipt Date: 20200928
  Transmission Date: 20201103
  Serious: Yes (Hospitalization, Other)
  Sender: FDA-Public Use
  Company Number: NZ-PFIZER INC-2020271345

PATIENT
  Age: 58 Year
  Sex: Male

DRUGS (2)
  1. FLUCONAZOLE. [Suspect]
     Active Substance: FLUCONAZOLE
     Dosage: UNK (DOSE WAS INCREASED)
     Route: 048
     Dates: start: 2015
  2. FLUCONAZOLE. [Suspect]
     Active Substance: FLUCONAZOLE
     Indication: ENZYME INHIBITION
     Dosage: 50 MG, ALTERNATE DAY
     Route: 048
     Dates: start: 2015, end: 2015

REACTIONS (3)
  - Off label use [Unknown]
  - Hypercalcaemia [Recovering/Resolving]
  - Drug ineffective for unapproved indication [Unknown]

NARRATIVE: CASE EVENT DATE: 2015
